FAERS Safety Report 25477188 (Version 1)
Quarter: 2025Q2

REPORT INFORMATION
  Report Type: Spontaneous
  Country: GB (occurrence: GB)
  Receive Date: 20250625
  Receipt Date: 20250625
  Transmission Date: 20250716
  Serious: No
  Sender: ALKEM
  Company Number: GB-ALKEM LABORATORIES LIMITED-GB-ALKEM-2025-00293

PATIENT
  Age: 7 Year
  Sex: Female

DRUGS (2)
  1. CINACALCET [Suspect]
     Active Substance: CINACALCET
     Indication: Hypercalcaemia
     Dosage: 4 MILLIGRAM/KILOGRAM, QD, (60 MILLIGRAMTWICE A DAY)
     Route: 065
  2. CINACALCET [Suspect]
     Active Substance: CINACALCET
     Indication: Hyperparathyroidism tertiary
     Dosage: 1 MILLIGRAM/KILOGRAM, QD, (15 MILLIGRAM TWICE A DAY)
     Route: 065

REACTIONS (1)
  - Therapy non-responder [Unknown]
